FAERS Safety Report 15698276 (Version 4)
Quarter: 2019Q1

REPORT INFORMATION
  Report Type: Spontaneous
  Country: JP (occurrence: JP)
  Receive Date: 20181207
  Receipt Date: 20190325
  Transmission Date: 20190417
  Serious: Yes (Hospitalization, Other)
  Sender: FDA-Public Use
  Company Number: JP-BRISTOL-MYERS SQUIBB COMPANY-BMS-2018-109437

PATIENT
  Age: 70 Year
  Sex: Female
  Weight: 57 kg

DRUGS (3)
  1. BAKTAR [Suspect]
     Active Substance: SULFAMETHOXAZOLE\TRIMETHOPRIM
     Indication: METASTATIC RENAL CELL CARCINOMA
     Dosage: 2 DF, Q12H
     Route: 048
     Dates: start: 20180130, end: 20180205
  2. OPDIVO [Suspect]
     Active Substance: NIVOLUMAB
     Indication: METASTATIC RENAL CELL CARCINOMA
     Dosage: 170 MG, Q2WK
     Route: 041
     Dates: start: 20170602
  3. INLYTA [Suspect]
     Active Substance: AXITINIB
     Indication: METASTATIC RENAL CELL CARCINOMA
     Dosage: 4 MG, UNK
     Route: 065
     Dates: start: 20180308

REACTIONS (6)
  - Malignant neoplasm progression [Unknown]
  - Radiation skin injury [Recovered/Resolved]
  - Diarrhoea [Recovering/Resolving]
  - Insomnia [Unknown]
  - Bacteraemia [Recovered/Resolved]
  - Musculoskeletal pain [Recovered/Resolved]

NARRATIVE: CASE EVENT DATE: 20170914
